FAERS Safety Report 4382504-3 (Version None)
Quarter: 2004Q2

REPORT INFORMATION
  Report Type: 
  Country: None (occurrence: None)
  Receive Date: 20040607
  Receipt Date: 20040521
  Transmission Date: 20050107
  Serious: Yes (Hospitalization)
  Sender: FDA-Public Use
  Company Number: 2004-01784

PATIENT
  Age: 72 Year
  Sex: Male

DRUGS (7)
  1. IMMUCYST (BCG-IT (CONNAUGHT) ), AVENTIS PASTEUR LTD., [Suspect]
     Indication: BLADDER CANCER
     Dosage: 81.0 MG
     Dates: start: 20040224, end: 20040413
  2. ALLOPURINOL [Concomitant]
  3. FENOFIBRATE [Concomitant]
  4. ZOLPIDEM TARTRATE [Concomitant]
  5. PROPIVERINE HYDROCHLORIDE [Concomitant]
  6. LOXOPROFEN SODIUM [Concomitant]
  7. TEPRENONE [Concomitant]

REACTIONS (14)
  - BLADDER CONSTRICTION [None]
  - BLADDER DISORDER [None]
  - BLOOD CREATININE DECREASED [None]
  - BLOOD CREATININE INCREASED [None]
  - BLOOD POTASSIUM DECREASED [None]
  - BLOOD POTASSIUM INCREASED [None]
  - HYPERTROPHY [None]
  - POLLAKIURIA [None]
  - RENAL DISORDER [None]
  - RENAL FAILURE [None]
  - RESIDUAL URINE VOLUME [None]
  - TUBERCULOSIS OF GENITOURINARY SYSTEM [None]
  - URINARY TRACT DISORDER [None]
  - VESICOURETERIC REFLUX [None]
